FAERS Safety Report 8811855 (Version 1)
Quarter: 2012Q4

REPORT INFORMATION
  Report Type: 
  Country: CN (occurrence: CN)
  Receive Date: 20120927
  Receipt Date: 20120927
  Transmission Date: 20130627
  Serious: Yes (Other)
  Sender: FDA-Public Use
  Company Number: CN-GLAXOSMITHKLINE-B0833347A

PATIENT
  Sex: Female
  Weight: 66 kg

DRUGS (2)
  1. LAMIVUDINE [Suspect]
     Indication: HEPATITIS B
     Dosage: 100MG Per day
     Route: 048
     Dates: start: 20100803, end: 20110812
  2. UNKNOWN [Concomitant]
     Indication: LIVER DISORDER

REACTIONS (3)
  - Hepatic function abnormal [Recovered/Resolved with Sequelae]
  - Alanine aminotransferase increased [Recovered/Resolved with Sequelae]
  - Hepatitis B [Recovered/Resolved with Sequelae]
